FAERS Safety Report 7579545-1 (Version None)
Quarter: 2011Q2

REPORT INFORMATION
  Report Type: 
  Country: None (occurrence: None)
  Receive Date: 20110629
  Receipt Date: 20110622
  Transmission Date: 20111010
  Serious: No
  Sender: FDA-Public Use
  Company Number: US-JNJFOC-20110611595

PATIENT
  Sex: Female
  Weight: 54.43 kg

DRUGS (1)
  1. FENTANYL [Suspect]
     Indication: HEADACHE
     Route: 062
     Dates: start: 20110301

REACTIONS (3)
  - WRONG TECHNIQUE IN DRUG USAGE PROCESS [None]
  - PRODUCT QUALITY ISSUE [None]
  - DRUG ADMINISTERED AT INAPPROPRIATE SITE [None]
